FAERS Safety Report 8534383-8 (Version None)
Quarter: 2012Q3

REPORT INFORMATION
  Report Type: 
  Country: None (occurrence: None)
  Receive Date: 20120724
  Receipt Date: 20120709
  Transmission Date: 20120928
  Serious: Yes (Other)
  Sender: FDA-Public Use
  Company Number: GB-WATSON-2012-12432

PATIENT
  Age: 22 Year
  Sex: Female

DRUGS (6)
  1. RISPERIDONE [Suspect]
     Indication: DISTURBANCE IN SOCIAL BEHAVIOUR
     Dosage: 1.5 MG, DAILY
     Route: 048
     Dates: start: 20101101
  2. RISPERIDONE [Suspect]
     Dosage: 0.25MG-1.5MG DAILY, (VARIABLE DOSE)
     Route: 048
     Dates: start: 20100415, end: 20100708
  3. ESCITALOPRAM [Suspect]
     Dosage: 10 MG, DAILY
     Route: 048
     Dates: start: 20101125, end: 20101230
  4. ESCITALOPRAM [Suspect]
     Indication: ANXIETY
     Dosage: 20MG DAILY
     Route: 048
     Dates: start: 20101230, end: 20110520
  5. RISPERIDONE [Suspect]
     Dosage: 1.5 MG, DAILY
     Route: 048
     Dates: start: 20100708, end: 20100929
  6. ORPHENADRINE CITRATE [Concomitant]
     Indication: PRODUCT USED FOR UNKNOWN INDICATION
     Dosage: 50 MG, TID
     Route: 065
     Dates: start: 20101111

REACTIONS (3)
  - DISTURBANCE IN SOCIAL BEHAVIOUR [None]
  - OCULOGYRIC CRISIS [None]
  - ANXIETY [None]
